FAERS Safety Report 9358830 (Version 1)
Quarter: 2013Q2

REPORT INFORMATION
  Report Type: Spontaneous
  Country: US (occurrence: US)
  Receive Date: 20130620
  Receipt Date: 20130620
  Transmission Date: 20140414
  Serious: Yes (Hospitalization)
  Sender: FDA-Public Use
  Company Number: US-ELI_LILLY_AND_COMPANY-US201306003910

PATIENT
  Age: 78 Year
  Sex: Female

DRUGS (8)
  1. FORTEO [Suspect]
     Indication: OSTEOPOROSIS
     Dosage: UNK UNK, QD
     Dates: start: 201109
  2. ZOLOFT [Concomitant]
  3. ASPIRIN LOW [Concomitant]
  4. CARVEDILOL [Concomitant]
  5. PANTOPRAZOLE [Concomitant]
  6. PRAVASTATIN [Concomitant]
  7. CITRACAL + D [Concomitant]
  8. CALTRATE [Concomitant]

REACTIONS (4)
  - Hip fracture [Unknown]
  - Facial bones fracture [Recovering/Resolving]
  - Fall [Unknown]
  - Fall [Recovering/Resolving]
